FAERS Safety Report 16096405 (Version 1)
Quarter: 2019Q1

REPORT INFORMATION
  Report Type: Spontaneous
  Country: CH (occurrence: CH)
  Receive Date: 20190320
  Receipt Date: 20190320
  Transmission Date: 20190418
  Serious: Yes (Other)
  Sender: FDA-Public Use
  Company Number: CH-009507513-1903CHE005358

PATIENT
  Age: 33 Year
  Sex: Female

DRUGS (2)
  1. COPEGUS [Suspect]
     Active Substance: RIBAVIRIN
     Indication: HEPATITIS C
     Dosage: UNK
     Dates: start: 201802, end: 201806
  2. ZEPATIER [Suspect]
     Active Substance: ELBASVIR\GRAZOPREVIR
     Indication: HEPATITIS C
     Dosage: UNK
     Route: 048
     Dates: start: 201802, end: 201806

REACTIONS (3)
  - Incorrect product administration duration [Unknown]
  - Hepatitis C [Unknown]
  - Malabsorption [Unknown]

NARRATIVE: CASE EVENT DATE: 2018
